FAERS Safety Report 4527191-6 (Version None)
Quarter: 2004Q4

REPORT INFORMATION
  Report Type: 
  Country: None (occurrence: None)
  Receive Date: 20041213
  Receipt Date: 20041126
  Transmission Date: 20050328
  Serious: Yes (Hospitalization, Other)
  Sender: FDA-Public Use
  Company Number: CA-2004-031412

PATIENT
  Age: 58 Year
  Sex: Female

DRUGS (3)
  1. BETASERON [Suspect]
     Indication: MULTIPLE SCLEROSIS
     Dosage: 8 MIU, EVERY 2D NEW AUTOINJECTOR, SUBCUTANEOUS
     Route: 058
     Dates: start: 19981216
  2. METFORMIN ^MERCK^ (METFORMIN HYDROCHLORIDE) [Concomitant]
  3. SEROQUEL [Concomitant]

REACTIONS (7)
  - DYSPEPSIA [None]
  - EPILEPSY [None]
  - INSOMNIA [None]
  - LOSS OF CONSCIOUSNESS [None]
  - MEDICATION ERROR [None]
  - SUICIDAL IDEATION [None]
  - VERTIGO [None]
